FAERS Safety Report 11938200 (Version 1)
Quarter: 2016Q1

REPORT INFORMATION
  Report Type: Spontaneous
  Country: US (occurrence: US)
  Receive Date: 20160122
  Receipt Date: 20160122
  Transmission Date: 20160526
  Serious: No
  Sender: FDA-Public Use
  Company Number: US-BAYER-2016-013334

PATIENT
  Age: 70 Year
  Sex: Female
  Weight: 85.71 kg

DRUGS (9)
  1. LUNESTA [Concomitant]
     Active Substance: ESZOPICLONE
  2. LAMOTRIGINE. [Concomitant]
     Active Substance: LAMOTRIGINE
  3. MIRALAX [Suspect]
     Active Substance: POLYETHYLENE GLYCOL 3350
     Indication: CONSTIPATION
     Dosage: 1 DF, QD
     Route: 048
     Dates: start: 201507
  4. CLONAZEPAM. [Concomitant]
     Active Substance: CLONAZEPAM
  5. TYLENOL ARTHRITIS PAIN [Concomitant]
     Active Substance: ACETAMINOPHEN
  6. CLARITIN [Suspect]
     Active Substance: LORATADINE
     Indication: SINUS HEADACHE
     Dosage: 1 DF, BID
     Route: 048
  7. MIRABEGRON [Concomitant]
     Active Substance: MIRABEGRON
  8. DICLOFENAC SODIUM. [Concomitant]
     Active Substance: DICLOFENAC SODIUM
  9. CYMBALTA [Concomitant]
     Active Substance: DULOXETINE HYDROCHLORIDE

REACTIONS (3)
  - Drug ineffective [None]
  - Product use issue [None]
  - Product use issue [None]

NARRATIVE: CASE EVENT DATE: 201507
